FAERS Safety Report 12082278 (Version 3)
Quarter: 2016Q1

REPORT INFORMATION
  Report Type: Report from Study
  Country: CA (occurrence: CA)
  Receive Date: 20160217
  Receipt Date: 20160309
  Transmission Date: 20160526
  Serious: Yes (Other)
  Sender: FDA-Public Use
  Company Number: CA-ROCHE-1177020

PATIENT
  Age: 54 Year
  Sex: Female
  Weight: 56 kg

DRUGS (16)
  1. PAXIL (CANADA) [Concomitant]
  2. ACTEMRA [Suspect]
     Active Substance: TOCILIZUMAB
     Indication: RHEUMATOID ARTHRITIS
     Route: 042
     Dates: start: 20110812
  3. ACTEMRA [Suspect]
     Active Substance: TOCILIZUMAB
     Route: 042
     Dates: start: 20121010
  4. ACTEMRA [Suspect]
     Active Substance: TOCILIZUMAB
     Route: 042
     Dates: start: 20150420
  5. CRESTOR [Suspect]
     Active Substance: ROSUVASTATIN CALCIUM
     Indication: BLOOD CHOLESTEROL INCREASED
     Route: 065
  6. LIPITOR [Suspect]
     Active Substance: ATORVASTATIN CALCIUM
     Indication: HYPERCHOLESTEROLAEMIA
     Route: 065
  7. METHOTREXATE [Suspect]
     Active Substance: METHOTREXATE
     Indication: PRODUCT USED FOR UNKNOWN INDICATION
     Route: 065
  8. LEFLUNOMIDE. [Concomitant]
     Active Substance: LEFLUNOMIDE
  9. ACTEMRA [Suspect]
     Active Substance: TOCILIZUMAB
     Route: 042
     Dates: start: 20151216
  10. ZOCOR [Suspect]
     Active Substance: SIMVASTATIN
     Indication: BLOOD CHOLESTEROL INCREASED
     Route: 065
     Dates: start: 201412
  11. ACTEMRA [Suspect]
     Active Substance: TOCILIZUMAB
     Route: 042
     Dates: start: 20120104
  12. SULFASALAZINE. [Suspect]
     Active Substance: SULFASALAZINE
     Indication: PRODUCT USED FOR UNKNOWN INDICATION
     Route: 065
  13. VENTOLIN [Concomitant]
     Active Substance: ALBUTEROL SULFATE
     Dosage: AS NEEDED
     Route: 065
  14. RANITIDINE [Concomitant]
     Active Substance: RANITIDINE\RANITIDINE HYDROCHLORIDE
  15. ZANTAC [Concomitant]
     Active Substance: RANITIDINE HYDROCHLORIDE
     Route: 065
  16. AERIUS [Concomitant]
     Active Substance: DESLORATADINE

REACTIONS (40)
  - Arthropathy [Unknown]
  - Toxic shock syndrome [Unknown]
  - Arthrodesis [Recovered/Resolved]
  - Abasia [Not Recovered/Not Resolved]
  - Ill-defined disorder [Not Recovered/Not Resolved]
  - Peripheral swelling [Unknown]
  - Abdominal pain [Unknown]
  - Psoriasis [Unknown]
  - Joint swelling [Unknown]
  - Mean cell haemoglobin increased [Unknown]
  - Nausea [Unknown]
  - Osteoarthritis [Unknown]
  - Endocrine ophthalmopathy [Unknown]
  - Peripheral swelling [Recovering/Resolving]
  - Pain in extremity [Not Recovered/Not Resolved]
  - Feeding disorder [Unknown]
  - Haematochezia [Unknown]
  - Dyslipidaemia [Unknown]
  - Laceration [Unknown]
  - Abdominal pain upper [Unknown]
  - Weight increased [Unknown]
  - Arthrodesis [Not Recovered/Not Resolved]
  - Diarrhoea [Unknown]
  - Flatulence [Unknown]
  - Synovitis [Unknown]
  - Vomiting [Unknown]
  - Hypercholesterolaemia [Unknown]
  - Myalgia [Unknown]
  - Eye infection [Recovered/Resolved]
  - Eyelid disorder [Unknown]
  - Weight decreased [Unknown]
  - Foot deformity [Unknown]
  - Bunion operation [Unknown]
  - Contusion [Recovering/Resolving]
  - Hypersensitivity [Unknown]
  - Hypersensitivity [Recovering/Resolving]
  - Blood cholesterol increased [Not Recovered/Not Resolved]
  - Synovial cyst [Unknown]
  - Eyelid oedema [Unknown]
  - Pain [Not Recovered/Not Resolved]

NARRATIVE: CASE EVENT DATE: 20121205
